FAERS Safety Report 8392035-1 (Version None)
Quarter: 2012Q2

REPORT INFORMATION
  Report Type: 
  Country: None (occurrence: None)
  Receive Date: 20120529
  Receipt Date: 20120518
  Transmission Date: 20120825
  Serious: Yes (Hospitalization)
  Sender: FDA-Public Use
  Company Number: CA-BRISTOL-MYERS SQUIBB COMPANY-16614208

PATIENT
  Age: 64 Year
  Sex: Female

DRUGS (12)
  1. PERCOCET [Concomitant]
  2. ABILIFY [Suspect]
     Indication: BIPOLAR DISORDER
     Dates: start: 20110101, end: 20120507
  3. CLONAZEPAM [Concomitant]
  4. LEVOTHYROXINE SODIUM [Concomitant]
  5. EFFEXOR XR [Concomitant]
  6. LITHIUM CARBONATE [Concomitant]
  7. WELLBUTRIN [Concomitant]
  8. CIPROFLOXACIN HCL [Concomitant]
  9. OMEPRAZOLE (PRISOLEC) [Concomitant]
  10. MACROBID [Concomitant]
  11. DYAZIDE [Concomitant]
  12. TYLENOL [Concomitant]

REACTIONS (2)
  - HEPATITIS ACUTE [None]
  - URINARY TRACT INFECTION [None]
